FAERS Safety Report 24718996 (Version 1)
Quarter: 2024Q4

REPORT INFORMATION
  Report Type: Report from Study
  Country: IN (occurrence: IN)
  Receive Date: 20241210
  Receipt Date: 20241210
  Transmission Date: 20250115
  Serious: Yes (Hospitalization)
  Sender: ELI LILLY AND COMPANY
  Company Number: IN-ELI_LILLY_AND_COMPANY-IN202412003470

PATIENT
  Age: 54 Year
  Sex: Female

DRUGS (3)
  1. ABEMACICLIB [Suspect]
     Active Substance: ABEMACICLIB
     Indication: Breast cancer metastatic
     Dosage: UNK, UNKNOWN
     Route: 048
     Dates: start: 20241001, end: 20241126
  2. ABEMACICLIB [Suspect]
     Active Substance: ABEMACICLIB
     Dosage: 100 MG, DAILY (IN THE MORNING)
     Route: 048
     Dates: start: 2024
  3. ABEMACICLIB [Suspect]
     Active Substance: ABEMACICLIB
     Dosage: 150 MG, DAILY (AT NIGHT)
     Route: 048
     Dates: start: 2024

REACTIONS (1)
  - Haemoglobin decreased [Recovered/Resolved]

NARRATIVE: CASE EVENT DATE: 20240101
